FAERS Safety Report 4933129-X (Version None)
Quarter: 2006Q1

REPORT INFORMATION
  Report Type: 
  Country: None (occurrence: None)
  Receive Date: 20060301
  Receipt Date: 20060301
  Transmission Date: 20060701
  Serious: Yes (Death)
  Sender: FDA-Public Use
  Company Number: None

PATIENT
  Age: 40 Year
  Sex: Female
  Weight: 99.7913 kg

DRUGS (1)
  1. AVASTIN [Suspect]

REACTIONS (5)
  - BLADDER DISORDER [None]
  - DISSEMINATED INTRAVASCULAR COAGULATION [None]
  - HAEMORRHAGIC INFARCTION [None]
  - INTESTINAL INFARCTION [None]
  - OESOPHAGEAL DISORDER [None]
